FAERS Safety Report 14111158 (Version 2)
Quarter: 2018Q1

REPORT INFORMATION
  Report Type: Spontaneous
  Country: JP (occurrence: JP)
  Receive Date: 20171020
  Receipt Date: 20180129
  Transmission Date: 20180508
  Serious: Yes (Hospitalization)
  Sender: FDA-Public Use
  Company Number: JP-ALLERGAN-1759620US

PATIENT
  Age: 8 Decade
  Sex: Female

DRUGS (1)
  1. MEMANTINE HCL - BP [Suspect]
     Active Substance: MEMANTINE
     Indication: DEMENTIA
     Dosage: 20 MG, QD
     Route: 048

REACTIONS (2)
  - Overdose [Unknown]
  - Altered state of consciousness [Recovered/Resolved]
